FAERS Safety Report 7354894-0 (Version None)
Quarter: 2011Q1

REPORT INFORMATION
  Report Type: 
  Country: None (occurrence: None)
  Receive Date: 20110316
  Receipt Date: 20081215
  Transmission Date: 20110831
  Serious: Yes (Hospitalization, Other)
  Sender: FDA-Public Use
  Company Number: US-BAYER-200840436NA

PATIENT
  Sex: Male
  Weight: 134.24 kg

DRUGS (21)
  1. TRASYLOL [Suspect]
     Indication: AORTIC VALVE REPAIR
  2. DOBUTREX [Concomitant]
     Dosage: UNK
     Dates: start: 20050508
  3. HEPARIN [Concomitant]
     Dosage: 10.000 U, UNK
     Route: 042
     Dates: start: 20050507
  4. HEPARIN [Concomitant]
     Dosage: 40.000 U, UNK
     Route: 042
     Dates: start: 20050507, end: 20050507
  5. TRASYLOL [Suspect]
     Indication: AORTIC DISSECTION
     Dosage: 200 ML LOADING DOSE WITH NO DRIP FOLLOWING
     Route: 042
     Dates: start: 20050507, end: 20050507
  6. RED BLOOD CELLS [Concomitant]
     Indication: AORTIC DISSECTION
     Dosage: 2 U, UNK
     Dates: start: 20050507
  7. TRASYLOL [Suspect]
     Indication: CARDIAC OPERATION
     Dosage: 2 ML, INITIAL (TEST) DOSE
     Route: 042
     Dates: start: 20050507
  8. EPINEPHRINE [Concomitant]
     Dosage: LOW DOSE
     Dates: start: 20050508
  9. NORVASC [Concomitant]
     Indication: HYPERTENSION
  10. ZOSYN [Concomitant]
     Dosage: UNK
     Dates: start: 20050510
  11. NEO-SYNEPHRINOL [Concomitant]
     Dosage: UNK
     Route: 042
     Dates: start: 20050507, end: 20050507
  12. PLATELETS [Concomitant]
     Indication: AORTIC DISSECTION
     Dosage: 2 U, UNK
     Dates: start: 20050507
  13. BUMEX [Concomitant]
     Dosage: UNK
     Dates: start: 20050508, end: 20050509
  14. GLYBURIDE [Concomitant]
     Indication: DIABETES MELLITUS
     Dosage: 5 MG, UNK
     Route: 048
  15. RED BLOOD CELLS [Concomitant]
     Dosage: MULTIPLE UNITS
     Dates: start: 20050508
  16. EPINEPHRINE [Concomitant]
     Dosage: 200 ML/HR
     Route: 042
     Dates: start: 20050507, end: 20050507
  17. METOPROLOL SUCCINATE [Concomitant]
     Dosage: 25 MG, UNK
     Route: 042
     Dates: start: 20050507
  18. TRASYLOL [Suspect]
     Indication: CARDIOPULMONARY BYPASS
  19. PROTAMINE SULFATE [Concomitant]
     Dosage: 300MG
     Dates: start: 20050507, end: 20050507
  20. VANCOMYCIN [Concomitant]
     Dosage: UNK
     Dates: start: 20050510
  21. GLUCOPHAGE [Concomitant]
     Indication: DIABETES MELLITUS

REACTIONS (6)
  - INJURY [None]
  - PAIN [None]
  - RENAL FAILURE ACUTE [None]
  - RENAL FAILURE [None]
  - UNEVALUABLE EVENT [None]
  - CEREBROVASCULAR ACCIDENT [None]
